FAERS Safety Report 10084246 (Version 1)
Quarter: 2014Q2

REPORT INFORMATION
  Report Type: Spontaneous
  Country: US (occurrence: US)
  Receive Date: 20140417
  Receipt Date: 20140417
  Transmission Date: 20141212
  Serious: No
  Sender: FDA-Public Use
  Company Number: US-JNJFOC-20140409870

PATIENT
  Age: 63 Year
  Sex: Female
  Weight: 90.27 kg

DRUGS (1)
  1. DURAGESIC [Suspect]
     Indication: ABDOMINAL OPERATION
     Route: 062

REACTIONS (2)
  - Drug ineffective [Unknown]
  - Drug dose omission [Unknown]
